FAERS Safety Report 12924533 (Version 3)
Quarter: 2017Q4

REPORT INFORMATION
  Report Type: Spontaneous
  Country: US (occurrence: US)
  Receive Date: 20161109
  Receipt Date: 20171215
  Transmission Date: 20180320
  Serious: Yes (Other)
  Sender: FDA-Public Use
  Company Number: US-BAYER-2016-213009

PATIENT
  Age: 24 Year
  Sex: Female

DRUGS (11)
  1. MORPHINE [Concomitant]
     Active Substance: MORPHINE
     Dosage: 4 MG, UNK
     Route: 030
  2. IBUPROFEN. [Concomitant]
     Active Substance: IBUPROFEN
  3. CELEXA [Concomitant]
     Active Substance: CITALOPRAM HYDROBROMIDE
  4. CETIRIZINE HYDROCHLORIDE. [Concomitant]
     Active Substance: CETIRIZINE HYDROCHLORIDE
  5. CYANOCOBALAMIN. [Concomitant]
     Active Substance: CYANOCOBALAMIN
  6. MIRENA [Suspect]
     Active Substance: LEVONORGESTREL
     Dosage: 20 MCG/24HR, CONT
     Route: 015
     Dates: start: 20090716, end: 2013
  7. ALBUTEROL SULFATE. [Concomitant]
     Active Substance: ALBUTEROL SULFATE
  8. AMOXIL [Concomitant]
     Active Substance: AMOXICILLIN
     Indication: CONJUNCTIVITIS
  9. DIAMOX SEQUELS [Concomitant]
     Active Substance: ACETAZOLAMIDE
  10. CITALOPRAM [Concomitant]
     Active Substance: CITALOPRAM HYDROBROMIDE
  11. VITAMIN B12 [Concomitant]
     Active Substance: CYANOCOBALAMIN

REACTIONS (6)
  - Vision blurred [None]
  - Visual field defect [None]
  - Idiopathic intracranial hypertension [None]
  - Headache [None]
  - Dizziness [None]
  - Diplopia [None]

NARRATIVE: CASE EVENT DATE: 201107
